FAERS Safety Report 7858616-6 (Version None)
Quarter: 2011Q4

REPORT INFORMATION
  Report Type: 
  Country: None (occurrence: None)
  Receive Date: 20111027
  Receipt Date: 20110131
  Transmission Date: 20120403
  Serious: Yes (Other)
  Sender: FDA-Public Use
  Company Number: US-BAYER-2011-011239

PATIENT
  Sex: Female

DRUGS (1)
  1. YAZ [Suspect]
     Indication: PRODUCT USED FOR UNKNOWN INDICATION

REACTIONS (6)
  - PULMONARY EMBOLISM [None]
  - ANXIETY [None]
  - INJURY [None]
  - DEFORMITY [None]
  - DEEP VEIN THROMBOSIS [None]
  - PAIN [None]
